FAERS Safety Report 20366051 (Version 1)
Quarter: 2022Q1

REPORT INFORMATION
  Report Type: Other
  Country: US (occurrence: US)
  Receive Date: 20220123
  Receipt Date: 20220123
  Transmission Date: 20220423
  Serious: No
  Sender: FDA-Public Use
  Company Number: US-ACORDA-ACO_167843_2021

PATIENT
  Sex: Female

DRUGS (9)
  1. AMPYRA [Suspect]
     Active Substance: DALFAMPRIDINE
     Indication: Multiple sclerosis
     Dosage: 10 MILLIGRAM, BID
     Route: 048
     Dates: start: 20201020
  2. AMPYRA [Suspect]
     Active Substance: DALFAMPRIDINE
     Indication: Gait disturbance
  3. GABAPENTIN [Concomitant]
     Active Substance: GABAPENTIN
     Indication: Product used for unknown indication
     Dosage: 600 MILLIGRAM, 2 TABLETS BY MOUTH BID
     Route: 048
     Dates: start: 20210823
  4. DULOXETINE [Concomitant]
     Active Substance: DULOXETINE
     Indication: Product used for unknown indication
     Dosage: UNK
     Route: 065
  5. OXYBUTYNIN [Concomitant]
     Active Substance: OXYBUTYNIN
     Indication: Product used for unknown indication
     Dosage: UNK
     Route: 065
  6. CYMBALTA [Concomitant]
     Active Substance: DULOXETINE HYDROCHLORIDE
     Indication: Product used for unknown indication
     Dosage: 60 MILLIGRAM, QD
     Route: 048
     Dates: start: 20210823
  7. KESIMPTA [Concomitant]
     Active Substance: OFATUMUMAB
     Indication: Product used for unknown indication
     Dosage: 20 MG/0.4 ML 1 SQ INJECTION MONTHLY STARTING AT WEEK 4
     Route: 058
     Dates: start: 20201118
  8. PROTONIX [Concomitant]
     Active Substance: PANTOPRAZOLE SODIUM
     Indication: Gastrooesophageal reflux disease
     Dosage: 40 MILLIGRAM, QAM
     Route: 048
     Dates: start: 20210426
  9. TIZANIDINE [Concomitant]
     Active Substance: TIZANIDINE
     Indication: Muscle spasms
     Dosage: 4 MILLIGRAM, TID, PRN
     Route: 048
     Dates: start: 20210823

REACTIONS (12)
  - Mobility decreased [Recovering/Resolving]
  - Dysphonia [Recovering/Resolving]
  - Muscular weakness [Recovering/Resolving]
  - Hypoaesthesia [Unknown]
  - Alanine aminotransferase increased [Not Recovered/Not Resolved]
  - Condition aggravated [Recovering/Resolving]
  - Blood sodium increased [Not Recovered/Not Resolved]
  - Therapy cessation [Unknown]
  - Gait disturbance [Recovering/Resolving]
  - Balance disorder [Unknown]
  - Asthenia [Unknown]
  - Drug ineffective [Unknown]
